FAERS Safety Report 13384964 (Version 1)
Quarter: 2017Q1

REPORT INFORMATION
  Report Type: Spontaneous
  Country: US (occurrence: US)
  Receive Date: 20170330
  Receipt Date: 20170330
  Transmission Date: 20170429
  Serious: Yes (Hospitalization)
  Sender: FDA-Public Use
  Company Number: None

PATIENT
  Age: 82 Year
  Sex: Male

DRUGS (8)
  1. ONDANSETRON [Concomitant]
     Active Substance: ONDANSETRON
  2. NORETHIN [Concomitant]
  3. ZYTIGA [Suspect]
     Active Substance: ABIRATERONE ACETATE
     Indication: MATURE B-CELL TYPE ACUTE LEUKAEMIA
     Route: 048
     Dates: start: 20170304
  4. ERGOCALCIFER [Concomitant]
  5. NATURE-THROID [Concomitant]
     Active Substance: THYROID, PORCINE
  6. GABAPENTIN. [Concomitant]
     Active Substance: GABAPENTIN
  7. CARTIA XT [Concomitant]
     Active Substance: DILTIAZEM HYDROCHLORIDE
  8. LORAZEPAM. [Concomitant]
     Active Substance: LORAZEPAM

REACTIONS (1)
  - Urinary bladder haemorrhage [None]
